FAERS Safety Report 8874943 (Version 1)
Quarter: 2012Q4

REPORT INFORMATION
  Report Type: 
  Country: IT (occurrence: IT)
  Receive Date: 20121030
  Receipt Date: 20121030
  Transmission Date: 20130627
  Serious: Yes (Hospitalization)
  Sender: FDA-Public Use
  Company Number: IT-GILEAD-2012-0063889

PATIENT
  Age: 91 Year
  Sex: Male

DRUGS (5)
  1. RANOLAZINE [Suspect]
     Indication: ANGINA PECTORIS
     Dosage: UNK
     Route: 048
     Dates: start: 20120101
  2. FUROSEMIDE [Concomitant]
  3. TILDIEM [Concomitant]
  4. LUVION                             /00252501/ [Concomitant]
  5. MINITRAN                           /00003201/ [Concomitant]

REACTIONS (5)
  - Blood pressure increased [Unknown]
  - Chest pain [Unknown]
  - Musculoskeletal pain [Unknown]
  - Renal failure acute [Unknown]
  - Constipation [Unknown]
